FAERS Safety Report 8235182-7 (Version None)
Quarter: 2012Q1

REPORT INFORMATION
  Report Type: 
  Country: None (occurrence: None)
  Receive Date: 20120307
  Receipt Date: 20110222
  Transmission Date: 20120608
  Serious: Yes (Other)
  Sender: FDA-Public Use
  Company Number: PHHY2011US10883

PATIENT
  Age: 55 Year
  Sex: Male
  Weight: 70 kg

DRUGS (5)
  1. SANDOSTATIN LAR [Concomitant]
  2. AFINITOR [Suspect]
     Indication: NEUROENDOCRINE TUMOUR
     Dosage: 10 MG, QD, ORAL, 5 MG, QD, ORAL
     Route: 048
     Dates: start: 20110106
  3. AFINITOR [Suspect]
     Indication: NEUROENDOCRINE TUMOUR
     Dosage: 10 MG, QD, ORAL, 5 MG, QD, ORAL
     Route: 048
     Dates: start: 20110131
  4. OXYCODONE HCL [Concomitant]
  5. PHENERGAN (PHENYLEPHRINE HYDROCHLORIDE, PROMETHAZINE HYDROCHLORIDE) [Concomitant]

REACTIONS (1)
  - LIVER FUNCTION TEST ABNORMAL [None]
